FAERS Safety Report 10594253 (Version 5)
Quarter: 2015Q2

REPORT INFORMATION
  Report Type: Other
  Country: US (occurrence: US)
  Receive Date: 20141119
  Receipt Date: 20150629
  Transmission Date: 20150821
  Serious: Yes (Hospitalization)
  Sender: FDA-Public Use
  Company Number: US-ACORDA-ACO_104157_2014

PATIENT
  Age: 60 Year
  Sex: Male
  Weight: 119.27 kg

DRUGS (10)
  1. LOSARTAN [Concomitant]
     Active Substance: LOSARTAN
     Indication: PRODUCT USED FOR UNKNOWN INDICATION
     Dosage: 100 MG, UNK
     Route: 048
     Dates: start: 20131015, end: 20140917
  2. OXYBUTYNIN [Suspect]
     Active Substance: OXYBUTYNIN
     Indication: NEUROGENIC BLADDER
     Dosage: 10 MG, UNK
     Route: 048
     Dates: start: 20140103
  3. CALCIUM + VIT D [Concomitant]
     Active Substance: CALCIUM\VITAMIN D
     Indication: PRODUCT USED FOR UNKNOWN INDICATION
     Dosage: 5000 IU, UNK
     Route: 048
  4. GILENYA [Concomitant]
     Active Substance: FINGOLIMOD HYDROCHLORIDE
     Indication: PRODUCT USED FOR UNKNOWN INDICATION
     Dosage: 0.5 MG, QD
     Route: 048
     Dates: start: 20140212
  5. AMPYRA [Suspect]
     Active Substance: DALFAMPRIDINE
     Indication: MULTIPLE SCLEROSIS
     Dosage: 10 MG, Q 12 HRS
     Route: 065
     Dates: start: 20140327, end: 20140613
  6. VENLAFAXINE [Concomitant]
     Active Substance: VENLAFAXINE HYDROCHLORIDE
     Indication: PRODUCT USED FOR UNKNOWN INDICATION
     Dosage: 75 MG, BID
     Route: 048
     Dates: start: 20140103, end: 20150112
  7. AMPYRA [Suspect]
     Active Substance: DALFAMPRIDINE
     Dosage: 10 MG, Q 12 HRS
     Route: 048
     Dates: end: 20140808
  8. LEVOTHYROXINE [Concomitant]
     Active Substance: LEVOTHYROXINE
     Indication: PRODUCT USED FOR UNKNOWN INDICATION
     Dosage: 88 ?G, UNK
     Route: 048
     Dates: start: 20140109, end: 20140812
  9. BLACK CHERRY CONCENTRATE [Concomitant]
     Indication: PRODUCT USED FOR UNKNOWN INDICATION
     Dosage: UNK UNK, PRN
     Route: 048
  10. VITAMIN D [Concomitant]
     Active Substance: CHOLECALCIFEROL
     Indication: PRODUCT USED FOR UNKNOWN INDICATION
     Dosage: 2000 UNK, UNK
     Route: 048

REACTIONS (29)
  - Hyperhidrosis [Unknown]
  - Radiculopathy [Unknown]
  - Sensory loss [Unknown]
  - Neurogenic bladder [Unknown]
  - Muscular weakness [Unknown]
  - Muscle spasticity [Unknown]
  - Paraesthesia [Unknown]
  - Fatigue [Unknown]
  - Muscle tightness [Unknown]
  - Hypertension [Unknown]
  - Constipation [Unknown]
  - Disease progression [Not Recovered/Not Resolved]
  - Hyperlipidaemia [Unknown]
  - Gait spastic [Unknown]
  - Therapeutic response unexpected [Unknown]
  - Faecal incontinence [Unknown]
  - Drug hypersensitivity [Unknown]
  - Atrial fibrillation [Recovered/Resolved]
  - Depression [Unknown]
  - Pain in extremity [Unknown]
  - Hypothyroidism [Unknown]
  - Tachycardia [Recovered/Resolved]
  - Muscle spasms [Unknown]
  - Fall [Unknown]
  - Memory impairment [Unknown]
  - Dry mouth [Unknown]
  - Insomnia [Unknown]
  - Headache [Unknown]
  - Asthenia [Unknown]

NARRATIVE: CASE EVENT DATE: 201404
